FAERS Safety Report 9037171 (Version 2)
Quarter: 2013Q2

REPORT INFORMATION
  Report Type: Spontaneous
  Country: US (occurrence: None)
  Receive Date: 20120525
  Receipt Date: 20120827
  Transmission Date: 20140414
  Serious: No
  Sender: FDA-Public Use
  Company Number: 350176

PATIENT
  Sex: Female

DRUGS (1)
  1. VICTOZA (LIRAGLUTIDE) SOLUTION FOR INJECTION, 6 MG/ML [Suspect]
     Indication: PRODUCT USED FOR UNKNOWN INDICATION
     Route: 058

REACTIONS (9)
  - Tremor [None]
  - Asthenia [None]
  - Visual acuity reduced [None]
  - Breath odour [None]
  - Dry mouth [None]
  - Nasopharyngitis [None]
  - Diarrhoea [None]
  - Cough [None]
  - Malaise [None]
